FAERS Safety Report 9503978 (Version 1)
Quarter: 2013Q3

REPORT INFORMATION
  Report Type: Spontaneous
  Country: US (occurrence: None)
  Receive Date: 20130905
  Receipt Date: 20130905
  Transmission Date: 20140515
  Serious: Yes (Life-Threatening, Other)
  Sender: FDA-Public Use
  Company Number: None

PATIENT
  Age: 24 Year
  Sex: Female
  Weight: 137.89 kg

DRUGS (10)
  1. CYCLOSPORINE [Suspect]
     Indication: PSORIASIS
     Dosage: 4 CAPSULES  1XD  BY MOUTH
     Route: 048
     Dates: start: 20130810, end: 20130813
  2. NEXPLANON [Concomitant]
  3. PRISTIQ [Concomitant]
  4. TOPIMAX [Concomitant]
  5. NASONEX [Concomitant]
  6. ZYRTEC [Concomitant]
  7. TALCONEX [Concomitant]
  8. CLOBETASOL [Concomitant]
  9. MULTIVITES [Concomitant]
  10. IBUPROPHEN [Concomitant]

REACTIONS (3)
  - Depression [None]
  - Mood swings [None]
  - Suicidal ideation [None]
